FAERS Safety Report 4388420-5 (Version None)
Quarter: 2004Q3

REPORT INFORMATION
  Report Type: 
  Country: None (occurrence: None)
  Receive Date: 20040701
  Receipt Date: 20040614
  Transmission Date: 20050211
  Serious: Yes (Other)
  Sender: FDA-Public Use
  Company Number: FR-ROCHE-371161

PATIENT
  Age: 77 Year
  Sex: Male

DRUGS (4)
  1. PEGASYS [Suspect]
     Indication: HEPATITIS C
     Route: 058
  2. COPEGUS [Suspect]
     Indication: HEPATITIS C
     Route: 048
  3. UNKNOWN MEDICATION [Concomitant]
     Indication: CONSTIPATION
     Dosage: DRUG NAME - SENE, NOT FOUND ON ADVENT.
  4. ANTIHYPERTENSIVE DRUG [Concomitant]
     Indication: HYPERTENSION

REACTIONS (1)
  - ERYTHEMA MULTIFORME [None]
